FAERS Safety Report 8609714-0 (Version None)
Quarter: 2012Q3

REPORT INFORMATION
  Report Type: 
  Country: None (occurrence: None)
  Receive Date: 20120821
  Receipt Date: 20120813
  Transmission Date: 20120928
  Serious: Yes (Other)
  Sender: FDA-Public Use
  Company Number: US-CELGENEUS-163-21880-12072010

PATIENT
  Sex: Male
  Weight: 56.7 kg

DRUGS (13)
  1. HYDROCODONE [Concomitant]
     Indication: PAIN
     Dosage: 5-500MG
     Route: 065
     Dates: start: 20100920
  2. DECADRON PHOSPHATE [Concomitant]
     Indication: MULTIPLE MYELOMA
     Dosage: 20 MILLIGRAM
     Route: 065
     Dates: start: 20100510, end: 20101014
  3. VELCADE [Concomitant]
     Route: 065
     Dates: start: 20120508
  4. PROCRIT [Concomitant]
     Route: 065
     Dates: start: 20110907, end: 20111101
  5. BACTRIM [Concomitant]
     Route: 065
  6. VELCADE [Concomitant]
     Indication: MULTIPLE MYELOMA
     Route: 065
     Dates: start: 20100719
  7. ZANTAC [Concomitant]
     Dosage: 300 MILLIGRAM
     Route: 065
  8. ACYCLOVIR [Concomitant]
     Route: 065
  9. REVLIMID [Suspect]
     Indication: MULTIPLE MYELOMA
     Dosage: 25 MILLIGRAM
     Dates: start: 20100710
  10. DECADRON PHOSPHATE [Concomitant]
     Route: 065
     Dates: start: 20120508
  11. REVLIMID [Suspect]
     Dosage: 20 MILLIGRAM
     Dates: start: 20120518
  12. ZEMPLAR [Concomitant]
     Dosage: 2 MICROGRAM
     Route: 065
  13. ARANESP [Concomitant]
     Dosage: 23.8095 MICROGRAM
     Route: 065
     Dates: start: 20100920

REACTIONS (2)
  - OSTEONECROSIS [None]
  - HERPES ZOSTER [None]
